FAERS Safety Report 5703955-8 (Version None)
Quarter: 2008Q2

REPORT INFORMATION
  Report Type: 
  Country: None (occurrence: None)
  Receive Date: 20080414
  Receipt Date: 20080411
  Transmission Date: 20081010
  Serious: Yes (Hospitalization, Disabling, Other)
  Sender: FDA-Public Use
  Company Number: PHHO2004HK06182

PATIENT
  Age: 67 Year
  Sex: Female
  Weight: 58.8 kg

DRUGS (13)
  1. SENOKOT [Concomitant]
     Dates: start: 20040614, end: 20040831
  2. BETALOC [Concomitant]
     Indication: HYPERTENSION
     Dates: start: 20040610, end: 20040831
  3. VALSARTAN [Suspect]
     Indication: CARDIOVASCULAR DISORDER
     Dosage: LEVEL 1
     Route: 048
     Dates: start: 20030228
  4. VALSARTAN [Suspect]
     Dosage: LEVEL 2
     Route: 048
     Dates: end: 20040426
  5. LEVOTHYROXINE SODIUM [Concomitant]
     Indication: HYPOTHYROIDISM
     Dosage: 100 MCG, QD
     Route: 048
     Dates: start: 20010426, end: 20040831
  6. LIPITOR [Concomitant]
     Indication: HYPERLIPIDAEMIA
     Dosage: 5 MG, NOCTE
     Route: 048
     Dates: start: 20010719, end: 20040831
  7. ADALAT [Concomitant]
     Indication: HYPERTENSION
     Dosage: 40 MG, BID
     Route: 048
     Dates: start: 19991209
  8. PRAZOSIN HCL [Concomitant]
     Indication: HYPERTENSION
     Dosage: 3 MG, BID
     Route: 048
     Dates: start: 20020523
  9. ASPIRIN [Concomitant]
     Indication: PROPHYLAXIS
     Dosage: 80 MG, QD
     Route: 048
     Dates: start: 20030612, end: 20040831
  10. HYDROCHLOROTHIAZIDE [Concomitant]
     Indication: HYPERTENSION
     Dosage: 50 MG, QD
     Route: 048
     Dates: start: 20031125
  11. NATEGLINIDE [Suspect]
     Indication: GLUCOSE TOLERANCE IMPAIRED
     Dosage: LEVEL 1
     Route: 048
     Dates: start: 20030228
  12. NATEGLINIDE [Suspect]
     Dosage: LEVEL 2
     Route: 048
     Dates: end: 20040426
  13. ZESTRIL [Concomitant]
     Indication: HYPERTENSION
     Dates: start: 20040514, end: 20040831

REACTIONS (30)
  - APALLIC SYNDROME [None]
  - APHASIA [None]
  - ARTERIOSCLEROSIS [None]
  - ATRIAL FLUTTER [None]
  - BLADDER CATHETERISATION [None]
  - CEREBROVASCULAR ACCIDENT [None]
  - CONVULSION [None]
  - CREPITATIONS [None]
  - DISEASE PROGRESSION [None]
  - DYSARTHRIA [None]
  - ELECTROCARDIOGRAM ST SEGMENT DEPRESSION [None]
  - EPILEPSY [None]
  - EYE MOVEMENT DISORDER [None]
  - GASTROINTESTINAL TUBE INSERTION [None]
  - HEMIPARESIS [None]
  - HEMIPLEGIA [None]
  - HYPERTENSION [None]
  - HYPONATRAEMIA [None]
  - INFARCTION [None]
  - LOBAR PNEUMONIA [None]
  - LOWER RESPIRATORY TRACT INFECTION [None]
  - MUSCLE SPASTICITY [None]
  - MYOCARDIAL ISCHAEMIA [None]
  - OEDEMA PERIPHERAL [None]
  - PLATELET COUNT DECREASED [None]
  - PNEUMONIA ASPIRATION [None]
  - POLYURIA [None]
  - PYREXIA [None]
  - UMBILICAL HERNIA [None]
  - WHITE BLOOD CELL COUNT DECREASED [None]
